FAERS Safety Report 9553807 (Version 1)
Quarter: 2013Q3

REPORT INFORMATION
  Report Type: Spontaneous
  Country: DE (occurrence: DE)
  Receive Date: 20130925
  Receipt Date: 20130925
  Transmission Date: 20140515
  Serious: Yes (Other)
  Sender: FDA-Public Use
  Company Number: DE-UCBSA-097830

PATIENT
  Sex: 0

DRUGS (1)
  1. XUSAL [Suspect]
     Dosage: UNKNOWN DOSE

REACTIONS (1)
  - Eosinophilic myocarditis [Unknown]
